FAERS Safety Report 4818963-9 (Version None)
Quarter: 2005Q4

REPORT INFORMATION
  Report Type: 
  Country: None (occurrence: None)
  Receive Date: 20051102
  Receipt Date: 20051102
  Transmission Date: 20060501
  Serious: Yes (Death)
  Sender: FDA-Public Use
  Company Number: None

PATIENT
  Sex: Male

DRUGS (2)
  1. RITUXIMAB      BIOGEN + GENENTECH [Suspect]
     Indication: NON-HODGKIN'S LYMPHOMA
     Dosage: 160 MG   1 DOSE   IV
     Route: 042
     Dates: start: 20051019, end: 20051019
  2. RITUXIMAB       BIOGEN + GENENTECH [Suspect]

REACTIONS (5)
  - BLOOD PRESSURE DIASTOLIC DECREASED [None]
  - CARDIO-RESPIRATORY ARREST [None]
  - FEELING COLD [None]
  - HEART RATE DECREASED [None]
  - LOSS OF CONSCIOUSNESS [None]
